FAERS Safety Report 7062964-X (Version None)
Quarter: 2010Q4

REPORT INFORMATION
  Report Type: 
  Country: None (occurrence: None)
  Receive Date: 20101026
  Receipt Date: 20100422
  Transmission Date: 20110411
  Serious: Yes (Other)
  Sender: FDA-Public Use
  Company Number: US-PFIZER INC-2010020554

PATIENT
  Sex: Female

DRUGS (7)
  1. LIPITOR [Suspect]
     Dosage: UNK
  2. SIMVASTATIN [Suspect]
     Indication: BLOOD CHOLESTEROL
     Dosage: UNK
  3. ASPIRIN [Concomitant]
     Dosage: 81 MG, TWICE WEEKLY
  4. CALCIUM WITH VITAMIN D [Concomitant]
     Dosage: UNK
  5. LOVAZA [Concomitant]
     Dosage: UNK
  6. MANGANESE [Concomitant]
     Dosage: 10 MG, UNK
  7. MAGNESIUM [Concomitant]
     Dosage: 400 MG, UNK

REACTIONS (4)
  - DRUG HYPERSENSITIVITY [None]
  - MYALGIA [None]
  - PAIN [None]
  - PAIN IN EXTREMITY [None]
